FAERS Safety Report 22231103 (Version 1)
Quarter: 2023Q2

REPORT INFORMATION
  Report Type: Spontaneous
  Country: US (occurrence: None)
  Receive Date: 20230420
  Receipt Date: 20230420
  Transmission Date: 20230722
  Serious: No
  Sender: FDA-Public Use
  Company Number: US-ROCHE-3182532

PATIENT
  Sex: Female

DRUGS (2)
  1. KADCYLA [Suspect]
     Active Substance: ADO-TRASTUZUMAB EMTANSINE
     Indication: Triple positive breast cancer
     Route: 065
     Dates: start: 20211111
  2. TAMOXIFEN [Suspect]
     Active Substance: TAMOXIFEN
     Indication: Triple positive breast cancer
     Route: 065
     Dates: start: 202107

REACTIONS (1)
  - Myopia [Unknown]
